FAERS Safety Report 14376003 (Version 1)
Quarter: 2018Q1

REPORT INFORMATION
  Report Type: Spontaneous
  Country: US (occurrence: US)
  Receive Date: 20180111
  Receipt Date: 20180111
  Transmission Date: 20180509
  Serious: Yes (Other)
  Sender: FDA-Public Use
  Company Number: US-AMGEN-USASP2018002847

PATIENT
  Age: 58 Year
  Sex: Female

DRUGS (8)
  1. ALBUTEROL. [Concomitant]
     Active Substance: ALBUTEROL
     Dosage: UNK UNK, AS NECESSARY
  2. VENTOLIN [Concomitant]
     Active Substance: ALBUTEROL SULFATE
     Dosage: UNK UNK, AS NECESSARY
  3. FLONASE [Concomitant]
     Active Substance: FLUTICASONE PROPIONATE
     Dosage: UNK UNK, AS NECESSARY
  4. VITAMIN D [Concomitant]
     Active Substance: CHOLECALCIFEROL
     Dosage: UNK
  5. ORENCIA [Suspect]
     Active Substance: ABATACEPT
     Dosage: UNK UNK, Q2WK (ONE SHOT WEEKLY)
     Route: 065
  6. PREDNISONE. [Suspect]
     Active Substance: PREDNISONE
     Indication: RHEUMATOID ARTHRITIS
     Route: 065
  7. ENBREL [Suspect]
     Active Substance: ETANERCEPT
     Indication: RHEUMATOID ARTHRITIS
     Dosage: 50 MG, QWK
     Route: 065
  8. ORENCIA [Suspect]
     Active Substance: ABATACEPT
     Indication: RHEUMATOID ARTHRITIS
     Dosage: UNK UNK, Q2WK (TWO SHOTS EVERY TWO WEEKS)
     Route: 065

REACTIONS (19)
  - Gait inability [Unknown]
  - Vision blurred [Unknown]
  - Nausea [Unknown]
  - Tachyphrenia [Unknown]
  - Urticaria [Unknown]
  - Sinusitis [Unknown]
  - Heart rate increased [Unknown]
  - Rheumatoid arthritis [Unknown]
  - Headache [Unknown]
  - Rhinorrhoea [Unknown]
  - Abnormal dreams [Unknown]
  - Arthralgia [Unknown]
  - Parosmia [Unknown]
  - Immobile [Unknown]
  - Dyspnoea [Unknown]
  - Visual impairment [Unknown]
  - Drug effect decreased [Unknown]
  - Somnolence [Unknown]
  - Asthma [Unknown]

NARRATIVE: CASE EVENT DATE: 2017
